FAERS Safety Report 11629087 (Version 1)
Quarter: 2015Q4

REPORT INFORMATION
  Report Type: Spontaneous
  Country: FR (occurrence: FR)
  Receive Date: 20151014
  Receipt Date: 20151014
  Transmission Date: 20160304
  Serious: Yes (Death, Hospitalization, Other)
  Sender: FDA-Public Use
  Company Number: FR-PFIZER INC-2015338612

PATIENT
  Age: 83 Year
  Sex: Male

DRUGS (7)
  1. HEMIGOXINE NATIVELLE [Suspect]
     Active Substance: DIGOXIN
     Dosage: 0.125 MG, 5 TIMES WEEKLY
     Route: 048
     Dates: end: 20150831
  2. CRESTOR [Suspect]
     Active Substance: ROSUVASTATIN CALCIUM
     Dosage: 5 MG, 1X/DAY
     Route: 048
     Dates: end: 20150831
  3. TEMERIT [Suspect]
     Active Substance: NEBIVOLOL
     Dosage: 2.5 MG, 1X/DAY
     Route: 048
     Dates: end: 20150831
  4. TAREG [Suspect]
     Active Substance: VALSARTAN
     Dosage: 80 MG, 2X/DAY
     Route: 048
     Dates: end: 20150831
  5. XARELTO [Suspect]
     Active Substance: RIVAROXABAN
     Dosage: 20 MG, 1X/DAY
     Route: 048
     Dates: end: 20150831
  6. LASILIX SPECIAL /00032601/ [Suspect]
     Active Substance: FUROSEMIDE
     Dosage: 500 MG, UNK
     Route: 048
     Dates: end: 20150831
  7. INSPRA [Suspect]
     Active Substance: EPLERENONE
     Dosage: 25 MG, 1X/DAY
     Route: 048
     Dates: end: 20150831

REACTIONS (3)
  - Ischaemic stroke [Fatal]
  - Acute kidney injury [Unknown]
  - Anaemia [Unknown]

NARRATIVE: CASE EVENT DATE: 201508
